FAERS Safety Report 6571458-7 (Version None)
Quarter: 2010Q1

REPORT INFORMATION
  Report Type: 
  Country: None (occurrence: None)
  Receive Date: 20100205
  Receipt Date: 20100127
  Transmission Date: 20100710
  Serious: Yes (Other)
  Sender: FDA-Public Use
  Company Number: FR-JNJFOC-20091202416

PATIENT
  Age: 38 Year
  Sex: Female
  Weight: 70 kg

DRUGS (10)
  1. REMICADE [Suspect]
     Indication: ANKYLOSING SPONDYLITIS
     Route: 042
     Dates: start: 20060101
  2. REMICADE [Suspect]
     Route: 042
     Dates: start: 20060101
  3. REMICADE [Suspect]
     Route: 042
     Dates: start: 20060101
  4. REMICADE [Suspect]
     Route: 042
     Dates: start: 20060101
  5. REMICADE [Suspect]
     Route: 042
     Dates: start: 20060101
  6. REMICADE [Suspect]
     Route: 042
     Dates: start: 20060101
  7. BUTAZOLIDIN [Suspect]
     Indication: DRUG USE FOR UNKNOWN INDICATION
  8. METHOTREXATE [Concomitant]
  9. RIVOTRIL [Concomitant]
  10. SKENAN [Concomitant]

REACTIONS (2)
  - OEDEMA PERIPHERAL [None]
  - WEIGHT INCREASED [None]
